FAERS Safety Report 8622255-X (Version None)
Quarter: 2012Q3

REPORT INFORMATION
  Report Type: 
  Country: None (occurrence: None)
  Receive Date: 20120827
  Receipt Date: 20120815
  Transmission Date: 20120928
  Serious: Yes (Other)
  Sender: FDA-Public Use
  Company Number: US-BRISTOL-MYERS SQUIBB COMPANY-16860165

PATIENT
  Age: 55 Year
  Sex: Male
  Weight: 84 kg

DRUGS (1)
  1. ABILIFY [Suspect]
     Indication: PSYCHOTIC DISORDER
     Dosage: 15 MG TABS CUT IN TO 7.5MG. WEANING:GOING OFF FOR 12 DAYS, 30 DAYS -TAKING FOR 2 DAYS,
     Dates: start: 20030601

REACTIONS (5)
  - WRONG TECHNIQUE IN DRUG USAGE PROCESS [None]
  - CARDIAC OPERATION [None]
  - TREATMENT NONCOMPLIANCE [None]
  - CONSTIPATION [None]
  - PARKINSON'S DISEASE [None]
